FAERS Safety Report 4461742-5 (Version None)
Quarter: 2004Q3

REPORT INFORMATION
  Report Type: 
  Country: None (occurrence: None)
  Receive Date: 20040923
  Receipt Date: 20040910
  Transmission Date: 20050211
  Serious: Yes (Other)
  Sender: FDA-Public Use
  Company Number: 2004233215AU

PATIENT
  Age: 77 Year
  Sex: Male

DRUGS (5)
  1. ALPROSTADIL [Suspect]
     Dosage: INT CORP CAVERN
  2. THYROXINE SODIUM (LEVOTHYROXINE SODIUM) [Concomitant]
  3. ASASANTIN [Concomitant]
  4. DURIDE [Concomitant]
  5. PRAVACHOL [Concomitant]

REACTIONS (3)
  - BREAST MASS [None]
  - CHEST PAIN [None]
  - CHEST WALL PAIN [None]
